FAERS Safety Report 15043060 (Version 2)
Quarter: 2019Q1

REPORT INFORMATION
  Report Type: Report from Study
  Country: None (occurrence: US)
  Receive Date: 20180621
  Receipt Date: 20190131
  Transmission Date: 20190417
  Serious: Yes (Other)
  Sender: FDA-Public Use
  Company Number: US-ABBVIE-18K-163-2387401-00

PATIENT
  Age: 46 Year
  Sex: Female
  Weight: 65.83 kg

DRUGS (4)
  1. PLAQUENIL [Concomitant]
     Active Substance: HYDROXYCHLOROQUINE SULFATE
     Indication: RHEUMATOID ARTHRITIS
  2. HUMIRA [Suspect]
     Active Substance: ADALIMUMAB
     Indication: RHEUMATOID ARTHRITIS
     Route: 058
     Dates: start: 20180108, end: 20180528
  3. IMURAN [Concomitant]
     Active Substance: AZATHIOPRINE
     Indication: RHEUMATOID ARTHRITIS
  4. BYSTOLIC [Concomitant]
     Active Substance: NEBIVOLOL HYDROCHLORIDE
     Indication: HYPERTENSION

REACTIONS (5)
  - Neoplasm of thymus [Not Recovered/Not Resolved]
  - Thymoma [Unknown]
  - Swelling [Not Recovered/Not Resolved]
  - Mass [Not Recovered/Not Resolved]
  - Thymic cyst [Unknown]

NARRATIVE: CASE EVENT DATE: 2018
